APPROVED DRUG PRODUCT: AN-SULFUR COLLOID
Active Ingredient: TECHNETIUM TC-99M SULFUR COLLOID KIT
Strength: N/A
Dosage Form/Route: SOLUTION;INJECTION, ORAL
Application: N017858 | Product #001 | TE Code: AP
Applicant: SUN PHARMACEUTICAL INDUSTRIES INC
Approved: Approved Prior to Jan 1, 1982 | RLD: Yes | RS: Yes | Type: RX